FAERS Safety Report 20430509 (Version 1)
Quarter: 2022Q1

REPORT INFORMATION
  Report Type: Report from Study
  Country: FR (occurrence: FR)
  Receive Date: 20220204
  Receipt Date: 20220204
  Transmission Date: 20220423
  Serious: Yes (Hospitalization)
  Sender: FDA-Public Use
  Company Number: FR-SERVIER-S20009889

PATIENT

DRUGS (8)
  1. PEGASPARGASE [Suspect]
     Active Substance: PEGASPARGASE
     Indication: Acute lymphocytic leukaemia
     Dosage: 2075 IU
     Route: 042
     Dates: start: 20200713, end: 20200713
  2. PEGASPARGASE [Suspect]
     Active Substance: PEGASPARGASE
     Dosage: 2075 IU, D15, D43
     Route: 042
     Dates: start: 20200901, end: 20200930
  3. CYCLOPHOSPHAMIDE [Suspect]
     Active Substance: CYCLOPHOSPHAMIDE
     Indication: Acute lymphocytic leukaemia
     Dosage: 830 MG, D1, D29
     Route: 042
     Dates: start: 20200818
  4. MERCAPTOPURINE [Suspect]
     Active Substance: MERCAPTOPURINE
     Indication: Acute lymphocytic leukaemia
     Dosage: 50 MG, D1 TO 14, D29 TO D42
     Route: 048
     Dates: start: 20200818, end: 20200929
  5. CYTARABINE [Suspect]
     Active Substance: CYTARABINE
     Indication: Acute lymphocytic leukaemia
     Dosage: 62 MG, D3 TO D6, D10 TO D13, D31 TO D34, D38 TO D41
     Route: 042
     Dates: start: 20200821, end: 20200928
  6. CYTARABINE [Suspect]
     Active Substance: CYTARABINE
     Dosage: 30 MG, D3, D31
     Route: 037
     Dates: start: 20200821, end: 20200918
  7. TN UNSPECIFIED [Concomitant]
     Indication: Acute lymphocytic leukaemia
     Dosage: 12 MG, D3, D31
     Route: 037
     Dates: start: 20200821, end: 20200918
  8. TN UNSPECIFIED [Concomitant]
     Indication: Acute lymphocytic leukaemia
     Dosage: 15 MG, D3, D31
     Route: 037
     Dates: start: 20200821, end: 20200918

REACTIONS (3)
  - Thrombocytopenic purpura [Recovered/Resolved with Sequelae]
  - Pancreatitis acute [Recovered/Resolved]
  - Febrile bone marrow aplasia [Unknown]

NARRATIVE: CASE EVENT DATE: 20200820
